FAERS Safety Report 8412474-X (Version None)
Quarter: 2012Q2

REPORT INFORMATION
  Report Type: 
  Country: None (occurrence: None)
  Receive Date: 20120605
  Receipt Date: 20120521
  Transmission Date: 20120825
  Serious: No
  Sender: FDA-Public Use
  Company Number: US-AMGEN-USASP2012031794

PATIENT
  Age: 43 Year
  Sex: Male

DRUGS (1)
  1. ENBREL [Suspect]
     Indication: ANKYLOSING SPONDYLITIS
     Dosage: 50 MG, QWK
     Dates: start: 20060101

REACTIONS (6)
  - INCORRECT STORAGE OF DRUG [None]
  - MALAISE [None]
  - DIARRHOEA [None]
  - ABDOMINAL DISTENSION [None]
  - HEADACHE [None]
  - ARTHRITIS [None]
